FAERS Safety Report 17581940 (Version 1)
Quarter: 2020Q1

REPORT INFORMATION
  Report Type: Spontaneous
  Country: ES (occurrence: ES)
  Receive Date: 20200325
  Receipt Date: 20200325
  Transmission Date: 20200409
  Serious: Yes (Hospitalization)
  Sender: FDA-Public Use
  Company Number: ES-MYLANLABS-2020M1030613

PATIENT
  Age: 78 Year
  Sex: Male
  Weight: 76.5 kg

DRUGS (7)
  1. METFORMIN [Suspect]
     Active Substance: METFORMIN HYDROCHLORIDE
     Indication: TYPE 2 DIABETES MELLITUS
     Dosage: 850 MILLIGRAM, BID(1 COMPRIMIDO CADA 12 HORAS CR?NICO)
     Route: 048
     Dates: start: 20180313, end: 20200122
  2. FLUIMUCIL [Concomitant]
     Active Substance: ACETYLCYSTEINE
     Dosage: 600 MILLIGRAM, QD(1 COMPRIMIDO EFERVESCENTE CADA D?A DURANTE 20 D?AS)
     Route: 048
     Dates: start: 20200120
  3. ATORVASTATINA                      /01326101/ [Concomitant]
     Active Substance: ATORVASTATIN
     Indication: TYPE IIA HYPERLIPIDAEMIA
     Dosage: 40 MILLIGRAM, QD(1 COMPRIMIDO CADA D?A)
     Route: 048
     Dates: start: 20150622
  4. SINTROM [Concomitant]
     Active Substance: ACENOCOUMAROL
     Indication: ATRIAL FIBRILLATION
     Dosage: 2 MILLIGRAM, QD(2 COMPRIMIDO CADA D?A)
     Route: 048
     Dates: start: 20170308
  5. SEVIKAR HCT [Concomitant]
     Active Substance: AMLODIPINE BESYLATE\HYDROCHLOROTHIAZIDE\OLMESARTAN MEDOXOMIL
     Indication: HYPERTENSION
     Dosage: 1 DOSAGE FORM, QD(1 COMPRIMIDO CADA D?A)
     Route: 048
     Dates: start: 20150220
  6. PANTOPRAZOL                        /01263201/ [Concomitant]
     Active Substance: PANTOPRAZOLE
     Indication: PROPHYLAXIS AGAINST GASTROINTESTINAL ULCER
     Dosage: 20 MILLIGRAM, QD(1 COMPRIMIDO CADA D?A)
     Route: 048
     Dates: start: 20191104
  7. SEGURIL [Concomitant]
     Active Substance: FUROSEMIDE
     Indication: CARDIAC VALVE PROSTHESIS USER
     Dosage: 40 MILLIGRAM, QD(1 COMPRIMIDO CADA D?A)
     Dates: start: 20190715

REACTIONS (1)
  - Metabolic acidosis [Recovered/Resolved]

NARRATIVE: CASE EVENT DATE: 20200122
